FAERS Safety Report 9818908 (Version 3)
Quarter: 2014Q1

REPORT INFORMATION
  Report Type: Report from Study
  Country: JP (occurrence: JP)
  Receive Date: 20140115
  Receipt Date: 20140225
  Transmission Date: 20141002
  Serious: Yes (Hospitalization)
  Sender: FDA-Public Use
  Company Number: JP-PFIZER INC-2014008327

PATIENT
  Age: 76 Year
  Sex: Male
  Weight: 92 kg

DRUGS (5)
  1. XALKORI [Suspect]
     Indication: NON-SMALL CELL LUNG CANCER
     Dosage: 250 MG, 2X/DAY
     Route: 048
     Dates: start: 20130402, end: 20130628
  2. ALDACTONE [Suspect]
     Indication: OEDEMA
     Dosage: 25 MG, 2X/DAY
     Dates: start: 20130607
  3. KIPRES [Concomitant]
     Dosage: 10 MG, 1X/DAY
     Route: 048
     Dates: start: 20130218
  4. AMARYL [Concomitant]
     Dosage: 0.5 MG, 1X/DAY
     Route: 048
     Dates: start: 20130218
  5. DIART [Concomitant]
     Dosage: 60 MG, 1X/DAY
     Route: 048
     Dates: start: 20130218

REACTIONS (1)
  - Dehydration [Recovered/Resolved]
